FAERS Safety Report 6703578-8 (Version None)
Quarter: 2010Q2

REPORT INFORMATION
  Report Type: 
  Country: None (occurrence: None)
  Receive Date: 20100430
  Receipt Date: 20100419
  Transmission Date: 20101027
  Serious: Yes (Other)
  Sender: FDA-Public Use
  Company Number: FR-PFIZER INC-2010048754

PATIENT
  Age: 78 Year
  Sex: Female

DRUGS (2)
  1. ZYVOXID [Suspect]
     Indication: ENTEROCOCCAL INFECTION
     Dosage: UNK
     Route: 042
     Dates: end: 20100301
  2. QUINOLONE ANTIBACTERIALS [Suspect]

REACTIONS (3)
  - ENCEPHALOPATHY [None]
  - MYOCLONUS [None]
  - SEROTONIN SYNDROME [None]
